FAERS Safety Report 9280091 (Version 2)
Quarter: 2013Q2

REPORT INFORMATION
  Report Type: Spontaneous
  Country: DE (occurrence: DE)
  Receive Date: 20130509
  Receipt Date: 20130528
  Transmission Date: 20140414
  Serious: Yes (Hospitalization, Other)
  Sender: FDA-Public Use
  Company Number: DE-JNJFOC-20130504440

PATIENT
  Age: 38 Year
  Sex: Female

DRUGS (1)
  1. IBUPROFEN [Suspect]
     Indication: ARTHRALGIA
     Dosage: 600MG BS (BEFORE START OF THE RACE)
     Route: 065

REACTIONS (4)
  - Renal failure [Recovered/Resolved]
  - Proteinuria [None]
  - Hyperkalaemia [None]
  - Dyspnoea [None]
